FAERS Safety Report 4299997-2 (Version None)
Quarter: 2004Q1

REPORT INFORMATION
  Report Type: 
  Country: None (occurrence: None)
  Receive Date: 20040219
  Receipt Date: 20040210
  Transmission Date: 20041129
  Serious: Yes (Hospitalization)
  Sender: FDA-Public Use
  Company Number: 2004008804

PATIENT
  Sex: Female
  Weight: 54.4316 kg

DRUGS (2)
  1. UNISOM [Suspect]
     Indication: SLEEP DISORDER
     Dosage: AT LEAST 4 SLEEPGELS QD, ORAL
     Route: 048
  2. DIPHENHYDRAMINE HCL [Suspect]
     Indication: SLEEP DISORDER
     Dosage: ORAL
     Route: 048

REACTIONS (2)
  - MEDICATION ERROR [None]
  - MENTAL DISORDER [None]
